FAERS Safety Report 4928364-0 (Version None)
Quarter: 2006Q1

REPORT INFORMATION
  Report Type: 
  Country: None (occurrence: None)
  Receive Date: 20060228
  Receipt Date: 20050218
  Transmission Date: 20060701
  Serious: Yes (Death, Hospitalization, Other)
  Sender: FDA-Public Use
  Company Number: US-MERCK-0502USA02882

PATIENT
  Age: 66 Year
  Sex: Female
  Weight: 78 kg

DRUGS (4)
  1. VIOXX [Suspect]
     Indication: ARTHRITIS
     Route: 048
     Dates: start: 20030312, end: 20040901
  2. VIOXX [Suspect]
     Route: 048
     Dates: start: 20030312, end: 20040901
  3. VIOXX [Suspect]
     Route: 048
     Dates: start: 20030312, end: 20040901
  4. VIOXX [Suspect]
     Route: 048
     Dates: start: 20030312, end: 20040901

REACTIONS (22)
  - ABDOMINAL PAIN [None]
  - ANAEMIA OF CHRONIC DISEASE [None]
  - ASTHENIA [None]
  - ASTHMA [None]
  - BACK DISORDER [None]
  - BACK PAIN [None]
  - BLADDER DISORDER [None]
  - BLOOD TRIGLYCERIDES INCREASED [None]
  - CHEST PAIN [None]
  - CYSTITIS [None]
  - DEATH [None]
  - EXOSTOSIS [None]
  - HIATUS HERNIA [None]
  - HYPERKALAEMIA [None]
  - HYPONATRAEMIA [None]
  - MYOCARDIAL INFARCTION [None]
  - NAUSEA [None]
  - OVERDOSE [None]
  - PLEURAL EFFUSION [None]
  - PNEUMONIA [None]
  - SYNOVITIS [None]
  - URINARY TRACT INFECTION [None]
